FAERS Safety Report 12631235 (Version 2)
Quarter: 2016Q3

REPORT INFORMATION
  Report Type: Spontaneous
  Country: US (occurrence: US)
  Receive Date: 20160808
  Receipt Date: 20160808
  Transmission Date: 20161109
  Serious: No
  Sender: FDA-Public Use
  Company Number: US-BEH-2015052954

PATIENT
  Age: 55 Year
  Sex: Female
  Weight: 86.2 kg

DRUGS (15)
  1. CYMBALTA [Concomitant]
     Active Substance: DULOXETINE HYDROCHLORIDE
  2. IMITREX [Concomitant]
     Active Substance: SUMATRIPTAN SUCCINATE
  3. VALTREX [Concomitant]
     Active Substance: VALACYCLOVIR HYDROCHLORIDE
  4. SINGULAIR [Concomitant]
     Active Substance: MONTELUKAST SODIUM
  5. SOMA [Concomitant]
     Active Substance: CARISOPRODOL
  6. OXYCODONE [Concomitant]
     Active Substance: OXYCODONE
  7. ALEVE [Concomitant]
     Active Substance: NAPROXEN SODIUM
  8. PYRIDIUM [Concomitant]
     Active Substance: PHENAZOPYRIDINE
  9. HIZENTRA [Suspect]
     Active Substance: HUMAN IMMUNOGLOBULIN G
     Indication: IMMUNODEFICIENCY COMMON VARIABLE
     Dosage: 4 GM 20 ML VIAL
     Route: 058
  10. ACETAMINOPHEN. [Concomitant]
     Active Substance: ACETAMINOPHEN
  11. EPIPEN [Concomitant]
     Active Substance: EPINEPHRINE
     Indication: ANAPHYLACTIC REACTION
  12. VALIUM [Concomitant]
     Active Substance: DIAZEPAM
  13. LUNESTA [Concomitant]
     Active Substance: ESZOPICLONE
  14. ALBUTEROL. [Concomitant]
     Active Substance: ALBUTEROL
  15. DIPHENHYDRAMINE. [Concomitant]
     Active Substance: DIPHENHYDRAMINE

REACTIONS (2)
  - Rash [Unknown]
  - Haematoma [Unknown]
